FAERS Safety Report 4441641-5 (Version None)
Quarter: 2004Q3

REPORT INFORMATION
  Report Type: 
  Country: None (occurrence: None)
  Receive Date: 20040907
  Receipt Date: 20040414
  Transmission Date: 20050211
  Serious: Yes (Hospitalization)
  Sender: FDA-Public Use
  Company Number: US-AMGEN-US072566

PATIENT
  Sex: Female

DRUGS (5)
  1. NEULASTA [Suspect]
     Indication: CHEMOTHERAPY
     Route: 058
     Dates: start: 20040413, end: 20040413
  2. DOXORUBICIN HCL [Concomitant]
     Dates: start: 20040406
  3. BLEOMYCIN [Concomitant]
     Dates: start: 20040406
  4. VINBLASTINE SULFATE [Concomitant]
     Dates: start: 20040406
  5. DACARBAZINE [Concomitant]
     Dates: start: 20040406

REACTIONS (7)
  - ANAPHYLACTIC REACTION [None]
  - ANAPHYLACTIC SHOCK [None]
  - CARDIAC ARREST [None]
  - DIZZINESS [None]
  - RASH [None]
  - SYNCOPE [None]
  - TACHYCARDIA [None]
